FAERS Safety Report 5005620-1 (Version None)
Quarter: 2006Q2

REPORT INFORMATION
  Report Type: 
  Country: None (occurrence: None)
  Receive Date: 20060515
  Receipt Date: 20060503
  Transmission Date: 20061013
  Serious: Yes (Death)
  Sender: FDA-Public Use
  Company Number: 2006059875

PATIENT
  Age: 63 Year
  Sex: Male

DRUGS (4)
  1. DILANTIN [Suspect]
     Indication: ILL-DEFINED DISORDER
  2. THIORIDAZINE HCL [Concomitant]
  3. TEGRETOL [Concomitant]
  4. EPILIM (VALPROATE SODIUM) [Concomitant]

REACTIONS (2)
  - HEPATIC FUNCTION ABNORMAL [None]
  - PYREXIA [None]
